FAERS Safety Report 11386910 (Version 4)
Quarter: 2019Q2

REPORT INFORMATION
  Report Type: Spontaneous
  Country: US (occurrence: US)
  Receive Date: 20150817
  Receipt Date: 20190624
  Transmission Date: 20190711
  Serious: No
  Sender: FDA-Public Use
  Company Number: US-PFIZER INC-2015272389

PATIENT
  Age: 50 Year
  Sex: Female
  Weight: 72 kg

DRUGS (13)
  1. TEGRETOL [Concomitant]
     Active Substance: CARBAMAZEPINE
     Indication: MOOD ALTERED
     Dosage: 400 MG, 2X/DAY
  2. LEVOTHYROXINE. [Concomitant]
     Active Substance: LEVOTHYROXINE
     Indication: THYROID DISORDER
     Dosage: 0.112 UG, 1X/DAY [IN THE MORNING]
     Route: 048
  3. LAMICTAL [Concomitant]
     Active Substance: LAMOTRIGINE
     Dosage: 400 MG, 1X/DAY [TWO 200 MG, AT NIGHT]
     Route: 048
  4. SYNTHROID [Concomitant]
     Active Substance: LEVOTHYROXINE SODIUM
     Indication: HYPERTHYROIDISM
     Dosage: UNK
     Dates: start: 2007
  5. ZIPRASIDONE. [Concomitant]
     Active Substance: ZIPRASIDONE
     Indication: BIPOLAR DISORDER
     Dosage: 80 MG, 2X/DAY
     Route: 048
  6. PRISTIQ EXTENDED-RELEASE [Suspect]
     Active Substance: DESVENLAFAXINE SUCCINATE
     Indication: DEPRESSION
     Dosage: 50 MG, 1X/DAY
  7. PRISTIQ EXTENDED-RELEASE [Suspect]
     Active Substance: DESVENLAFAXINE SUCCINATE
     Dosage: 150 MG, UNK
  8. LAMICTAL [Concomitant]
     Active Substance: LAMOTRIGINE
     Indication: AFFECTIVE DISORDER
     Dosage: 400 MG, 1X/DAY AT BEDTIME
  9. PROPRANOLOL [Concomitant]
     Active Substance: PROPRANOLOL HYDROCHLORIDE
     Indication: CARDIAC DISORDER
     Dosage: 20 MG, 2X/DAY
  10. PROPRANOLOL [Concomitant]
     Active Substance: PROPRANOLOL HYDROCHLORIDE
     Dosage: UNK
  11. PRISTIQ EXTENDED-RELEASE [Suspect]
     Active Substance: DESVENLAFAXINE SUCCINATE
     Dosage: 25 MG, 2X/DAY (HALF A TABLET IN THE MORNING AND A HALF OF TABLET AT NIGHT)
     Route: 048
  12. XANAX [Concomitant]
     Active Substance: ALPRAZOLAM
     Indication: ANXIETY
     Dosage: 2 MG, UNK (EVERY 4 HOURS AT 6, 10, 2, 6, AND BEDTIME)
     Dates: start: 2007
  13. PROZIN [CHLORPROMAZINE HYDROCHLORIDE] [Concomitant]
     Active Substance: CHLORPROMAZINE HYDROCHLORIDE
     Indication: NIGHTMARE
     Dosage: UNK, 2X/DAY [ONCE IN MORNING AND ONCE AT NIGHT]

REACTIONS (3)
  - Head discomfort [Recovered/Resolved]
  - Withdrawal syndrome [Recovered/Resolved]
  - Wrong technique in product usage process [Unknown]
